FAERS Safety Report 17099219 (Version 2)
Quarter: 2020Q1

REPORT INFORMATION
  Report Type: Report from Study
  Country: CA (occurrence: CA)
  Receive Date: 20191202
  Receipt Date: 20200225
  Transmission Date: 20200409
  Serious: Yes (Death, Hospitalization, Other)
  Sender: FDA-Public Use
  Company Number: NVSC2019CA054936

PATIENT
  Age: 68 Year
  Sex: Female
  Weight: 92.7 kg

DRUGS (2)
  1. AFINITOR [Suspect]
     Active Substance: EVEROLIMUS
     Indication: PRODUCT USED FOR UNKNOWN INDICATION
     Dosage: 10 MG, OT
     Route: 048
     Dates: start: 201811, end: 20190327
  2. EXEMESTANE. [Suspect]
     Active Substance: EXEMESTANE
     Indication: PRODUCT USED FOR UNKNOWN INDICATION
     Route: 065

REACTIONS (10)
  - Respiratory failure [Fatal]
  - Confusional state [Fatal]
  - Malignant neoplasm progression [Fatal]
  - Oxygen saturation decreased [Fatal]
  - Dyspnoea [Unknown]
  - Breast cancer [Fatal]
  - Pneumonia [Unknown]
  - Febrile neutropenia [Fatal]
  - Pneumonitis [Fatal]
  - Fatigue [Unknown]

NARRATIVE: CASE EVENT DATE: 201903
